FAERS Safety Report 5757584-0 (Version None)
Quarter: 2008Q2

REPORT INFORMATION
  Report Type: 
  Country: None (occurrence: None)
  Receive Date: 20080603
  Receipt Date: 20080522
  Transmission Date: 20081010
  Serious: Yes (Other)
  Sender: FDA-Public Use
  Company Number: US-PFIZER INC-2008044642

PATIENT
  Sex: Female
  Weight: 85.7 kg

DRUGS (6)
  1. LYRICA [Suspect]
     Indication: FIBROMYALGIA
  2. ATENOLOL [Concomitant]
  3. HYDROCHLOROTHIAZIDE [Concomitant]
  4. LEXAPRO [Concomitant]
  5. LEVOTHYROXINE SODIUM [Concomitant]
  6. TIAGABINE HCL [Concomitant]

REACTIONS (5)
  - CATARACT OPERATION [None]
  - DETACHMENT OF RETINAL PIGMENT EPITHELIUM [None]
  - DIPLOPIA [None]
  - VISION BLURRED [None]
  - VISUAL DISTURBANCE [None]
